FAERS Safety Report 4846185-4 (Version None)
Quarter: 2005Q4

REPORT INFORMATION
  Report Type: 
  Country: None (occurrence: None)
  Receive Date: 20051206
  Receipt Date: 20051005
  Transmission Date: 20060501
  Serious: Yes (Hospitalization, Other)
  Sender: FDA-Public Use
  Company Number: US-MERCK-0510USA04545

PATIENT
  Age: 72 Year
  Sex: Male
  Weight: 50 kg

DRUGS (2)
  1. VIOXX [Suspect]
     Indication: OSTEOARTHRITIS
     Route: 048
     Dates: start: 20010807, end: 20040926
  2. VIOXX [Suspect]
     Indication: CHONDROPATHY
     Route: 048
     Dates: start: 20010807, end: 20040926

REACTIONS (4)
  - CORONARY ARTERY OCCLUSION [None]
  - DYSPNOEA [None]
  - HIP ARTHROPLASTY [None]
  - MYOCARDIAL INFARCTION [None]
